FAERS Safety Report 6884748-5 (Version None)
Quarter: 2010Q3

REPORT INFORMATION
  Report Type: 
  Country: None (occurrence: None)
  Receive Date: 20100729
  Receipt Date: 20070730
  Transmission Date: 20110219
  Serious: No
  Sender: FDA-Public Use
  Company Number: US-PFIZER INC-2007063506

PATIENT
  Sex: Female
  Weight: 50.8 kg

DRUGS (3)
  1. CELEBREX [Suspect]
     Indication: RHEUMATOID ARTHRITIS
     Route: 048
     Dates: start: 20070726, end: 20070729
  2. METOPROLOL TARTRATE [Concomitant]
  3. LEXAPRO [Concomitant]
     Indication: DEPRESSION

REACTIONS (3)
  - GASTRIC DISORDER [None]
  - NERVOUSNESS [None]
  - VOMITING [None]
